FAERS Safety Report 7628784-X (Version None)
Quarter: 2011Q3

REPORT INFORMATION
  Report Type: 
  Country: None (occurrence: None)
  Receive Date: 20110722
  Receipt Date: 20110720
  Transmission Date: 20111222
  Serious: Yes (Hospitalization)
  Sender: FDA-Public Use
  Company Number: US-PFIZER INC-2011165410

PATIENT
  Sex: Male
  Weight: 136 kg

DRUGS (2)
  1. PHENYTOIN [Suspect]
     Indication: EPILEPSY
     Dosage: 800 MG, DAILY
  2. DILANTIN [Concomitant]
     Indication: EPILEPSY
     Dosage: 800 MG, DAILY
     Route: 048

REACTIONS (3)
  - FALL [None]
  - CONVULSION [None]
  - JAW FRACTURE [None]
